FAERS Safety Report 8842832 (Version 1)
Quarter: 2012Q4

REPORT INFORMATION
  Report Type: 
  Country: US (occurrence: US)
  Receive Date: 20121016
  Receipt Date: 20121016
  Transmission Date: 20130627
  Serious: Yes (Hospitalization)
  Sender: FDA-Public Use
  Company Number: US-SPECIAR-2012-17589

PATIENT
  Age: 90 Year
  Sex: Female

DRUGS (3)
  1. GEMCITABINE [Suspect]
     Indication: ADENOCARCINOMA PANCREAS
     Dosage: UNK
     Route: 065
  2. AMIODARONE HYDROCHLORIDE [Suspect]
     Indication: ATRIAL TACHYCARDIA
  3. ERLOTINIB [Suspect]
     Indication: ADENOCARCINOMA PANCREAS
     Route: 065

REACTIONS (4)
  - Pulmonary toxicity [Recovering/Resolving]
  - Pneumonitis [Recovering/Resolving]
  - Acute respiratory failure [Recovering/Resolving]
  - Deep vein thrombosis [Recovering/Resolving]
